FAERS Safety Report 18590769 (Version 2)
Quarter: 2020Q4

REPORT INFORMATION
  Report Type: Spontaneous
  Country: IS (occurrence: IS)
  Receive Date: 20201208
  Receipt Date: 20201215
  Transmission Date: 20210114
  Serious: Yes (Death, Life-Threatening, Hospitalization)
  Sender: FDA-Public Use
  Company Number: IS-TEVA-2020-IS-1854948

PATIENT
  Age: 40 Year
  Sex: Male

DRUGS (1)
  1. CLOZAPIN MEDICAL TOFLUR [Suspect]
     Active Substance: CLOZAPINE
     Dosage: 150 MILLIGRAM DAILY; 150 MG X 1
     Route: 065

REACTIONS (6)
  - Tachycardia [Fatal]
  - Hepatic failure [Fatal]
  - Cardiac arrest [Fatal]
  - Dyspnoea [Fatal]
  - Renal failure [Fatal]
  - Atrial fibrillation [Fatal]
